FAERS Safety Report 20529828 (Version 5)
Quarter: 2022Q4

REPORT INFORMATION
  Report Type: Report from Study
  Country: US (occurrence: US)
  Receive Date: 20220301
  Receipt Date: 20221105
  Transmission Date: 20230113
  Serious: No
  Sender: FDA-Public Use
  Company Number: US-NOVARTISTESTPH-NVSC2022US047947

PATIENT
  Age: 60 Year
  Sex: Female

DRUGS (2)
  1. COSENTYX [Suspect]
     Active Substance: SECUKINUMAB
     Indication: Psoriasis
     Dosage: 300 MG, QMO
     Route: 058
     Dates: start: 20210605
  2. COSENTYX [Suspect]
     Active Substance: SECUKINUMAB
     Indication: Psoriatic arthropathy

REACTIONS (6)
  - Cough [Unknown]
  - Dysphonia [Unknown]
  - Infection [Recovered/Resolved]
  - Rhinorrhoea [Unknown]
  - Nasopharyngitis [Unknown]
  - Fungal infection [Unknown]

NARRATIVE: CASE EVENT DATE: 20221012
